FAERS Safety Report 6665983-8 (Version None)
Quarter: 2010Q1

REPORT INFORMATION
  Report Type: 
  Country: None (occurrence: None)
  Receive Date: 20100330
  Receipt Date: 20100323
  Transmission Date: 20100710
  Serious: Yes (Other)
  Sender: FDA-Public Use
  Company Number: 20108507

PATIENT
  Sex: Male

DRUGS (4)
  1. LIORESAL [Suspect]
     Indication: MUSCLE SPASTICITY
     Dosage: DAILY, INTRATHECAL
     Route: 037
  2. SUFENTANIL [Concomitant]
  3. BUPIVACAINE HCL [Concomitant]
  4. CLONIDINE [Concomitant]

REACTIONS (1)
  - WOUND DEHISCENCE [None]
